FAERS Safety Report 7674793-4 (Version None)
Quarter: 2011Q3

REPORT INFORMATION
  Report Type: 
  Country: None (occurrence: None)
  Receive Date: 20110810
  Receipt Date: 20110805
  Transmission Date: 20111222
  Serious: Yes (Hospitalization)
  Sender: FDA-Public Use
  Company Number: GB-GLAXOSMITHKLINE-B0737813A

PATIENT
  Age: 48 Year
  Sex: Female

DRUGS (4)
  1. SPIRIVA [Concomitant]
  2. SERETIDE [Concomitant]
  3. VENTOLIN HFA [Suspect]
     Indication: PRODUCT USED FOR UNKNOWN INDICATION
     Route: 055
  4. ATROVENT [Concomitant]

REACTIONS (5)
  - DYSPNOEA [None]
  - PRODUCT QUALITY ISSUE [None]
  - DYSSTASIA [None]
  - HEART RATE IRREGULAR [None]
  - GAIT DISTURBANCE [None]
